FAERS Safety Report 19130482 (Version 2)
Quarter: 2021Q2

REPORT INFORMATION
  Report Type: Spontaneous
  Country: US (occurrence: US)
  Receive Date: 20210414
  Receipt Date: 20210520
  Transmission Date: 20210717
  Serious: No
  Sender: FDA-Public Use
  Company Number: US-ASTRAZENECA-2021A162322

PATIENT
  Age: 90 Year
  Sex: Female

DRUGS (5)
  1. SYMBICORT [Suspect]
     Active Substance: BUDESONIDE\FORMOTEROL FUMARATE DIHYDRATE
     Indication: HIV ANTIBODY NEGATIVE
     Dosage: 80 4.5 MCG 1 INHALATION, DAILY
     Route: 055
  2. SPRAY ORAL INHALER [Concomitant]
  3. SYMBICORT [Suspect]
     Active Substance: BUDESONIDE\FORMOTEROL FUMARATE DIHYDRATE
     Indication: HIV ANTIBODY NEGATIVE
     Dosage: 80 4.5 MCG 2 INHALATIONS BID
     Route: 055
  4. FLONASE [Concomitant]
     Active Substance: FLUTICASONE PROPIONATE
     Route: 065
  5. SINGULAIR [Concomitant]
     Active Substance: MONTELUKAST SODIUM

REACTIONS (13)
  - Intentional device misuse [Unknown]
  - Axillary pain [Unknown]
  - Device delivery system issue [Unknown]
  - Chest pain [Unknown]
  - Diabetes mellitus [Unknown]
  - Dyspnoea [Unknown]
  - Arthritis [Not Recovered/Not Resolved]
  - Dust allergy [Unknown]
  - Asthenia [Unknown]
  - Therapeutic product effect decreased [Unknown]
  - Back pain [Unknown]
  - Incorrect dose administered by device [Unknown]
  - Mycotic allergy [Unknown]
